FAERS Safety Report 5472384-7 (Version None)
Quarter: 2007Q3

REPORT INFORMATION
  Report Type: 
  Country: None (occurrence: None)
  Receive Date: 20070927
  Receipt Date: 20070917
  Transmission Date: 20080115
  Serious: Yes (Other)
  Sender: FDA-Public Use
  Company Number: 2007-164377-NL

PATIENT
  Age: 24 Year
  Sex: Female

DRUGS (5)
  1. NUVARING [Suspect]
     Indication: CONTRACEPTION
     Dosage: VAGINAL
     Route: 067
     Dates: start: 20070601
  2. LAMOTRIGINE [Suspect]
     Dosage: 525 MG DAILY ORAL, 150 MG (MORNING) + 150 MG (AFTERNOON) + 225 MG (EVENING)
     Route: 048
  3. IMURAN [Concomitant]
  4. PREDNISONE [Concomitant]
  5. HYDROXYCHLOROQUINE SO4 (PLAQUENIL) [Concomitant]

REACTIONS (1)
  - CONVULSION [None]
